FAERS Safety Report 8585659 (Version 5)
Quarter: 2013Q4

REPORT INFORMATION
  Report Type: Spontaneous
  Country: US (occurrence: US)
  Receive Date: 20120530
  Receipt Date: 20131011
  Transmission Date: 20140711
  Serious: Yes (Hospitalization, Other)
  Sender: FDA-Public Use
  Company Number: US-GLAXOSMITHKLINE-A0963191A

PATIENT
  Age: 41 Year
  Sex: Female
  Weight: 44.1 kg

DRUGS (15)
  1. FLOLAN [Suspect]
     Indication: PULMONARY ARTERIAL HYPERTENSION
     Dosage: 64NGKM CONTINUOUS
     Route: 042
     Dates: start: 20100113
  2. BARACLUDE [Concomitant]
  3. URSODIOL [Concomitant]
  4. KLOR-CON [Concomitant]
  5. LASIX [Concomitant]
  6. KENALOG [Concomitant]
  7. ALDACTONE [Concomitant]
  8. DRISDOL [Concomitant]
  9. SYNTHROID [Concomitant]
  10. LASIX [Concomitant]
  11. ADCIRCA [Concomitant]
  12. LETAIRIS [Concomitant]
     Indication: PULMONARY ARTERIAL HYPERTENSION
     Dosage: 10MG PER DAY
     Route: 048
     Dates: start: 20110615
  13. DIPRIVAN [Concomitant]
  14. XYLOCAINE [Concomitant]
  15. AUGMENTIN [Concomitant]
     Indication: RASH

REACTIONS (17)
  - Gastric haemorrhage [Recovered/Resolved]
  - Lung transplant [Unknown]
  - Duodenal ulcer [Unknown]
  - Melaena [Unknown]
  - Haemoptysis [Unknown]
  - Bronchitis [Unknown]
  - Anaemia [Recovered/Resolved]
  - Large intestine polyp [Unknown]
  - Diverticulum intestinal [Unknown]
  - Haemorrhoids [Unknown]
  - Large intestine benign neoplasm [Unknown]
  - Oesophagitis [Unknown]
  - Gastritis [Unknown]
  - Gastroduodenitis [Unknown]
  - Iron deficiency anaemia [Recovered/Resolved]
  - Rash [Unknown]
  - Skin irritation [Unknown]
